FAERS Safety Report 14795547 (Version 2)
Quarter: 2018Q2

REPORT INFORMATION
  Report Type: Report from Study
  Country: None (occurrence: TR)
  Receive Date: 20180423
  Receipt Date: 20180428
  Transmission Date: 20180711
  Serious: Yes (Death, Hospitalization)
  Sender: FDA-Public Use
  Company Number: TR-ABBVIE-18K-161-2331050-00

PATIENT
  Age: 74 Year
  Sex: Female

DRUGS (11)
  1. PEXOLA [Concomitant]
     Active Substance: PRAMIPEXOLE DIHYDROCHLORIDE
     Indication: PARKINSON^S DISEASE
     Route: 048
     Dates: end: 20180420
  2. DUODOPA [Suspect]
     Active Substance: CARBIDOPA\LEVODOPA
     Indication: PARKINSON^S DISEASE
     Dosage: MORNING DOSE(ML):6.60??CONTINUOUS DOSE(ML):2.40??EXTRA DOSE(ML):1.00
     Route: 050
     Dates: start: 20180418, end: 20180420
  3. DUODOPA [Suspect]
     Active Substance: CARBIDOPA\LEVODOPA
     Dosage: MORNING DOSE?(ML): 6,20?CONTINUOUS DOSE?(ML): 2,40?EXTRA DOSE?(ML): 1,00
     Route: 050
     Dates: start: 201804
  4. MADOPAR HBS [Concomitant]
     Active Substance: BENSERAZIDE HYDROCHLORIDE\LEVODOPA
     Indication: PARKINSON^S DISEASE
     Route: 048
  5. SEROQUEL [Concomitant]
     Active Substance: QUETIAPINE FUMARATE
     Indication: SLEEP DISORDER
     Route: 048
     Dates: start: 2016
  6. BENEXOL [Concomitant]
     Active Substance: CYANOCOBALAMIN\PYRIDOXINE\THIAMINE
     Indication: VITAMIN SUPPLEMENTATION
     Route: 048
  7. MELATONINA [Concomitant]
     Indication: SLEEP DISORDER
     Dosage: 1X2
     Route: 048
     Dates: start: 2016
  8. PEXOLA [Concomitant]
     Active Substance: PRAMIPEXOLE DIHYDROCHLORIDE
     Route: 048
  9. TARKA [Concomitant]
     Active Substance: TRANDOLAPRIL\VERAPAMIL HYDROCHLORIDE
     Indication: HYPERTENSION
     Route: 048
     Dates: start: 2008
  10. PANOCER [Concomitant]
     Indication: PROPHYLAXIS
     Route: 048
  11. PANOCER [Concomitant]
     Indication: PROPHYLAXIS

REACTIONS (5)
  - Device dislocation [Unknown]
  - Intentional medical device removal by patient [Unknown]
  - Respiratory arrest [Fatal]
  - Cyanosis [Not Recovered/Not Resolved]
  - Agitation [Not Recovered/Not Resolved]

NARRATIVE: CASE EVENT DATE: 201804
